FAERS Safety Report 5380291-3 (Version None)
Quarter: 2007Q3

REPORT INFORMATION
  Report Type: 
  Country: None (occurrence: None)
  Receive Date: 20070706
  Receipt Date: 20070625
  Transmission Date: 20080115
  Serious: Yes (Other)
  Sender: FDA-Public Use
  Company Number: VE-ROCHE-504473

PATIENT
  Age: 70 Year
  Sex: Female

DRUGS (2)
  1. XELODA [Suspect]
     Indication: RECTAL CANCER
     Route: 065
     Dates: start: 20070330, end: 20070501
  2. MEGACE [Concomitant]
     Dosage: THERAPY WAS RESTARTED IN APRIL 2007 AND WAS FINALLY DISCONTINUED IN MAY 2007.
     Dates: start: 20070201, end: 20070501

REACTIONS (2)
  - DYSPNOEA [None]
  - NEPHROTIC SYNDROME [None]
